FAERS Safety Report 5615844-8 (Version None)
Quarter: 2008Q1

REPORT INFORMATION
  Report Type: 
  Country: None (occurrence: None)
  Receive Date: 20080206
  Receipt Date: 20080125
  Transmission Date: 20080703
  Serious: Yes (Other)
  Sender: FDA-Public Use
  Company Number: US-ELI_LILLY_AND_COMPANY-US200801005815

PATIENT
  Age: 42 Year
  Sex: Female
  Weight: 58.957 kg

DRUGS (4)
  1. CYMBALTA [Suspect]
     Indication: DEPRESSION
     Dosage: 60 MG, DAILY (1/D)
     Route: 048
     Dates: start: 20051130
  2. MULTI-VITAMIN [Concomitant]
  3. ALLEGRA D                          /01367401/ [Concomitant]
     Dosage: UNK, AS NEEDED
  4. LUNESTA [Concomitant]
     Dosage: UNK, EACH EVENING

REACTIONS (4)
  - ABDOMINAL PAIN UPPER [None]
  - HEPATIC CYST [None]
  - LABORATORY TEST ABNORMAL [None]
  - LIVER DISORDER [None]
